FAERS Safety Report 13119079 (Version 1)
Quarter: 2017Q1

REPORT INFORMATION
  Report Type: Spontaneous
  Country: BR (occurrence: BR)
  Receive Date: 20170116
  Receipt Date: 20170116
  Transmission Date: 20170428
  Serious: Yes (Disabling, Other)
  Sender: FDA-Public Use
  Company Number: BR-SA-2017SA005433

PATIENT
  Age: 65 Year
  Sex: Male

DRUGS (4)
  1. ALLSTAR [Concomitant]
     Indication: DIABETES MELLITUS
     Dates: start: 201612
  2. CLIKSTAR [Concomitant]
     Active Substance: CLIKSTAR
     Indication: DIABETES MELLITUS
  3. APIDRA [Suspect]
     Active Substance: INSULIN GLULISINE
     Indication: DIABETES MELLITUS
     Route: 065
  4. LANTUS [Suspect]
     Active Substance: INSULIN GLARGINE
     Indication: DIABETES MELLITUS
     Route: 065

REACTIONS (4)
  - Wheelchair user [Unknown]
  - Cardiac disorder [Unknown]
  - Depression [Unknown]
  - Leg amputation [Unknown]
